FAERS Safety Report 19932340 (Version 1)
Quarter: 2021Q4

REPORT INFORMATION
  Report Type: Spontaneous
  Country: IN (occurrence: IN)
  Receive Date: 20211008
  Receipt Date: 20211008
  Transmission Date: 20220303
  Serious: Yes (Other)
  Sender: FDA-Public Use
  Company Number: IN-PFIZER INC-202101287157

PATIENT
  Age: 7 Year
  Sex: Male

DRUGS (1)
  1. PHENYTOIN [Suspect]
     Active Substance: PHENYTOIN
     Dosage: 50-100 MG/DAY
     Route: 048

REACTIONS (2)
  - Neurotoxicity [Unknown]
  - Cerebellar atrophy [Unknown]
